FAERS Safety Report 19772591 (Version 1)
Quarter: 2021Q3

REPORT INFORMATION
  Report Type: Spontaneous
  Country: US (occurrence: US)
  Receive Date: 20210827
  Receipt Date: 20210827
  Transmission Date: 20211014
  Serious: Yes (Hospitalization)
  Sender: FDA-Public Use
  Company Number: None

PATIENT
  Sex: Male

DRUGS (1)
  1. TOBI [Suspect]
     Active Substance: TOBRAMYCIN
     Indication: DRUG THERAPY
     Dosage: ?          OTHER ROUTE:INTO LUNGS?
     Dates: start: 20210316

REACTIONS (1)
  - Post procedural complication [None]
